FAERS Safety Report 14788012 (Version 1)
Quarter: 2018Q2

REPORT INFORMATION
  Report Type: Report from Study
  Country: IE (occurrence: IE)
  Receive Date: 20180422
  Receipt Date: 20180422
  Transmission Date: 20180711
  Serious: Yes (Other)
  Sender: FDA-Public Use
  Company Number: IE-ROCHE-548308

PATIENT
  Age: 68 Year
  Sex: Female

DRUGS (2)
  1. BEVACIZUMAB. [Suspect]
     Active Substance: BEVACIZUMAB
     Indication: NEOVASCULAR AGE-RELATED MACULAR DEGENERATION
     Dosage: SINGLE INJECTION GIVEN AND THEN REPEATED IF PERSISTENT LEAKAGE OR RECURRENCE OF RETINAL OEDEMA.
     Route: 050
  2. POVIDONE-IODINE. [Concomitant]
     Active Substance: POVIDONE-IODINE
     Dosage: 5% POVIDONE IODINE INTO THE CONJUNCTIVAL FORNICES AND 10% TO THE EYELID AND PERIORBITAL SKIN
     Route: 065

REACTIONS (3)
  - Retinal pigment epithelial tear [Unknown]
  - Off label use [Unknown]
  - Intentional product use issue [Unknown]
